FAERS Safety Report 9312687 (Version 1)
Quarter: 2013Q2

REPORT INFORMATION
  Report Type: Spontaneous
  Country: PL (occurrence: PL)
  Receive Date: 20130528
  Receipt Date: 20130528
  Transmission Date: 20140414
  Serious: Yes (Other)
  Sender: FDA-Public Use
  Company Number: PL-JNJFOC-20130512355

PATIENT
  Age: 26 Year
  Sex: Female

DRUGS (2)
  1. INFLIXIMAB, RECOMBINANT [Suspect]
     Indication: RHEUMATOID ARTHRITIS
     Dosage: STRENGTH 100 MG, 7 INFUSIONS IN TOTAL
     Route: 042
     Dates: start: 200601, end: 200611
  2. METHOTREXATE [Concomitant]
     Indication: RHEUMATOID ARTHRITIS
     Dosage: 12.5-17.5 MG A WEEK
     Route: 065

REACTIONS (3)
  - Urinary tract infection [Unknown]
  - Joint effusion [Unknown]
  - Drug ineffective [Unknown]
